FAERS Safety Report 5031997-7 (Version None)
Quarter: 2006Q2

REPORT INFORMATION
  Report Type: 
  Country: None (occurrence: None)
  Receive Date: 20060614
  Receipt Date: 20060607
  Transmission Date: 20061013
  Serious: Yes (Other)
  Sender: FDA-Public Use
  Company Number: 200610177

PATIENT
  Age: 16 Year
  Sex: Female
  Weight: 65.2 kg

DRUGS (11)
  1. CARIMUNE [Suspect]
     Indication: PNEUMONIA CYTOMEGALOVIRAL
     Dosage: 24 G Q1W IV
     Route: 042
     Dates: start: 20060430, end: 20060512
  2. GANCICLOVIR [Concomitant]
  3. LISINOPRIL [Concomitant]
  4. ORTHO TRI-CYCLEN [Concomitant]
  5. URSODIOL [Concomitant]
  6. CLOTRIMAZOLE TROCHES [Concomitant]
  7. LEVOFLOXACIN [Concomitant]
  8. DRONABINOL [Concomitant]
  9. AMBISOME / 01626201/ [Concomitant]
  10. GRANISETRON  HCL [Concomitant]
  11. LANSOPRAZOLE [Concomitant]

REACTIONS (9)
  - BLOOD CULTURE POSITIVE [None]
  - BLOOD PRESSURE DECREASED [None]
  - BREATH SOUNDS ABNORMAL [None]
  - CHILLS [None]
  - MENINGOCOCCAL INFECTION [None]
  - NEUTROPENIA [None]
  - PERIPHERAL COLDNESS [None]
  - SHOULDER PAIN [None]
  - TACHYPNOEA [None]
